FAERS Safety Report 10727902 (Version 1)
Quarter: 2015Q1

REPORT INFORMATION
  Report Type: Spontaneous
  Country: IR (occurrence: IR)
  Receive Date: 20150121
  Receipt Date: 20150121
  Transmission Date: 20150721
  Serious: Yes (Other)
  Sender: FDA-Public Use
  Company Number: PHHY2015IR006352

PATIENT
  Age: 10 Year
  Sex: Male
  Weight: 23 kg

DRUGS (1)
  1. OMNITROPE [Suspect]
     Active Substance: SOMATROPIN
     Indication: GROWTH HORMONE DEFICIENCY
     Dosage: 0.8 MG, UNK
     Route: 058

REACTIONS (5)
  - Hallucination [Unknown]
  - Nasopharyngitis [Unknown]
  - Illusion [Unknown]
  - Delirium [Unknown]
  - Tremor [Unknown]

NARRATIVE: CASE EVENT DATE: 20150104
